FAERS Safety Report 4936602-3 (Version None)
Quarter: 2006Q1

REPORT INFORMATION
  Report Type: 
  Country: None (occurrence: None)
  Receive Date: 20060303
  Receipt Date: 20060221
  Transmission Date: 20060701
  Serious: Yes (Death)
  Sender: FDA-Public Use
  Company Number: USA-2006-0023643

PATIENT
  Age: 48 Year
  Sex: Male

DRUGS (3)
  1. OXYCODONE HYDROCHLORIDE [Suspect]
  2. METHADONE HCL [Suspect]
  3. NORTRIPTYLINE (NORTRIPTYLINE) [Suspect]

REACTIONS (4)
  - ACCIDENTAL DEATH [None]
  - ARTERIOSCLEROSIS [None]
  - DRUG TOXICITY [None]
  - MULTIPLE DRUG OVERDOSE ACCIDENTAL [None]
